FAERS Safety Report 19704336 (Version 1)
Quarter: 2021Q3

REPORT INFORMATION
  Report Type: Spontaneous
  Country: US (occurrence: IT)
  Receive Date: 20210816
  Receipt Date: 20210816
  Transmission Date: 20211014
  Serious: Yes (Other)
  Sender: FDA-Public Use
  Company Number: IT-HIKMA PHARMACEUTICALS USA INC.-IT-H14001-21-03550

PATIENT
  Age: 55 Year
  Sex: Male

DRUGS (6)
  1. CYTARABINE. [Suspect]
     Active Substance: CYTARABINE
     Indication: PRODUCT USED FOR UNKNOWN INDICATION
     Dosage: CYCLIC (D1?7); PATIENT^S BODY SURFACE 1.95, TOTAL DOSAGE: 390 MG SEVEN TIMES
     Route: 065
     Dates: start: 20200117
  2. DAUNOBLASTINA [Suspect]
     Active Substance: DAUNORUBICIN
     Indication: PRODUCT USED FOR UNKNOWN INDICATION
     Dosage: CYCLIC (D1, 2, 3); PATIENT^S BODY SURFACE 1.95, TOTAL DOSAGE: 117 MG THREE TIMES
     Route: 065
     Dates: start: 20200117
  3. CYTARABINE. [Suspect]
     Active Substance: CYTARABINE
     Dosage: CYCLIC (D1?7); PATIENT^S BODY SURFACE 1.95, TOTAL DOSAGE: 390 MG SEVEN TIMES
     Route: 065
     Dates: start: 20200315
  4. MYLOTARG [Suspect]
     Active Substance: GEMTUZUMAB OZOGAMICIN
     Indication: ACUTE MONOCYTIC LEUKAEMIA
     Dosage: CYCLIC (D1, 4, 7); PATIENT^S BODY SURFACE 1.95, TOTAL DOSAGE: 4.97 MG THREE TIMES
     Route: 065
     Dates: start: 20210117
  5. DAUNOBLASTINA [Suspect]
     Active Substance: DAUNORUBICIN
     Dosage: CYCLIC (D1, 2, 3); PATIENT^S BODY SURFACE 1.95, TOTAL DOSAGE: 117 MG THREE TIMES
     Route: 065
     Dates: start: 20200315
  6. MYLOTARG [Suspect]
     Active Substance: GEMTUZUMAB OZOGAMICIN
     Dosage: CYCLIC (D1, 4, 7); PATIENT^S BODY SURFACE 1.95, TOTAL DOSAGE: 4.97 MG THREE TIMES
     Route: 065
     Dates: start: 20210315

REACTIONS (8)
  - Pyrexia [Unknown]
  - Thrombocytopenia [Unknown]
  - White blood cell count decreased [Unknown]
  - Ascites [Unknown]
  - Leukocytosis [Unknown]
  - Haemoglobin decreased [Unknown]
  - Neutrophil count decreased [Unknown]
  - Acute graft versus host disease [Recovered/Resolved]

NARRATIVE: CASE EVENT DATE: 20200224
